FAERS Safety Report 10032451 (Version 1)
Quarter: 2014Q1

REPORT INFORMATION
  Report Type: Spontaneous
  Country: CH (occurrence: None)
  Receive Date: 20140320
  Receipt Date: 20140320
  Transmission Date: 20141002
  Serious: No
  Sender: FDA-Public Use
  Company Number: B0976187A

PATIENT
  Sex: Male
  Weight: 89.81 kg

DRUGS (3)
  1. PAROXETINE HYDROCHLORIDE [Suspect]
     Indication: PRODUCT USED FOR UNKNOWN INDICATION
  2. MIRTAZAPINE [Suspect]
     Indication: DEPRESSION
     Route: 048
     Dates: start: 201401, end: 2014
  3. CITALOPRAM [Concomitant]

REACTIONS (5)
  - Nightmare [None]
  - Depression [None]
  - Anxiety [None]
  - Agitation [None]
  - Alcohol use [None]
